FAERS Safety Report 11923308 (Version 3)
Quarter: 2016Q1

REPORT INFORMATION
  Report Type: Spontaneous
  Country: JP (occurrence: JP)
  Receive Date: 20160118
  Receipt Date: 20160127
  Transmission Date: 20160526
  Serious: Yes (Hospitalization)
  Sender: FDA-Public Use
  Company Number: JP-009507513-1601JPN005210

PATIENT
  Age: 74 Year
  Sex: Male

DRUGS (4)
  1. JANUVIA [Suspect]
     Active Substance: SITAGLIPTIN PHOSPHATE
     Indication: DIABETES MELLITUS
     Dosage: 1 TABLET IN THE MORNING, 1 TABLET AT NIGHT
     Route: 048
     Dates: start: 201601
  2. AMARYL [Concomitant]
     Active Substance: GLIMEPIRIDE
     Dosage: 1 TABLET IN THE MORNING
     Route: 048
     Dates: start: 201601
  3. AMARYL [Concomitant]
     Active Substance: GLIMEPIRIDE
     Indication: DIABETES MELLITUS
     Dosage: 1 TABLET IN THE MORNING
     Route: 048
     Dates: start: 20130924, end: 20151228
  4. JANUVIA [Suspect]
     Active Substance: SITAGLIPTIN PHOSPHATE
     Dosage: 1 TABLET IN THE MORNING, 1 TABLET AT NIGHT
     Route: 048
     Dates: start: 20130924, end: 20151228

REACTIONS (2)
  - Inappropriate schedule of drug administration [Unknown]
  - Intestinal obstruction [Recovered/Resolved]

NARRATIVE: CASE EVENT DATE: 20151228
